FAERS Safety Report 6434858-1 (Version None)
Quarter: 2009Q4

REPORT INFORMATION
  Report Type: 
  Country: None (occurrence: None)
  Receive Date: 20091110
  Receipt Date: 20080530
  Transmission Date: 20100525
  Serious: Yes (Hospitalization)
  Sender: FDA-Public Use
  Company Number: FR-PFIZER INC-2009265056

PATIENT
  Age: 59 Year
  Sex: Female

DRUGS (12)
  1. EPIRUBICIN HCL [Suspect]
     Indication: GASTRIC CANCER
     Dosage: UNK
  2. CISPLATIN [Suspect]
     Indication: GASTRIC CANCER
     Dosage: UNK
  3. CAPECITABINE [Suspect]
     Indication: GASTRIC CANCER
     Dosage: UNK
  4. LEVOTHYROXINE SODIUM [Concomitant]
     Indication: HYPOTHYROIDISM
     Dosage: UNK
     Route: 048
  5. ISOPTIN - SLOW RELEASE [Concomitant]
     Indication: HYPERTENSION
     Dosage: 20 MG, UNK
     Route: 048
     Dates: start: 19970101
  6. CRESTOR [Concomitant]
     Indication: HYPERCHOLESTEROLAEMIA
     Dosage: 5 MG, UNK
     Route: 048
     Dates: start: 20010101
  7. BROMAZEPAM [Concomitant]
     Indication: DEPRESSION
     Dosage: 3 MG, UNK
     Route: 048
     Dates: start: 19970101
  8. STABLON [Concomitant]
     Indication: DEPRESSION
     Dosage: 12.5 MG, UNK
     Route: 048
     Dates: start: 19970101
  9. INIPOMP [Concomitant]
     Indication: PROPHYLAXIS AGAINST GASTROINTESTINAL ULCER
     Dosage: 20 MG, UNK
     Route: 048
     Dates: start: 20070801
  10. DURAGESIC-100 [Concomitant]
     Indication: PAIN
     Dosage: 25 UG, UNK
     Route: 062
     Dates: start: 20070801
  11. ACTISKENAN [Concomitant]
     Indication: PAIN
     Dosage: 10, AS NEEDED
     Route: 048
     Dates: start: 20070801
  12. FORLAX [Concomitant]
     Indication: CONSTIPATION
     Dosage: 1 DF, UNK
     Route: 048
     Dates: start: 20070801

REACTIONS (1)
  - RENAL FAILURE ACUTE [None]
